FAERS Safety Report 4953549-7 (Version None)
Quarter: 2006Q1

REPORT INFORMATION
  Report Type: 
  Country: None (occurrence: None)
  Receive Date: 20060324
  Receipt Date: 20051118
  Transmission Date: 20060701
  Serious: Yes (Hospitalization)
  Sender: FDA-Public Use
  Company Number: US-MERCK-0511USA03376

PATIENT
  Age: 54 Year
  Sex: Female
  Weight: 127 kg

DRUGS (2)
  1. VIOXX [Suspect]
     Indication: ARTHRALGIA
     Route: 048
     Dates: start: 20010101, end: 20020101
  2. VIOXX [Suspect]
     Route: 048
     Dates: start: 20010101, end: 20020101

REACTIONS (4)
  - CEREBROVASCULAR ACCIDENT [None]
  - GASTRIC DISORDER [None]
  - INJURY [None]
  - ROAD TRAFFIC ACCIDENT [None]
